FAERS Safety Report 10008870 (Version 2)
Quarter: 2014Q1

REPORT INFORMATION
  Report Type: Spontaneous
  Country: US (occurrence: US)
  Receive Date: 20140312
  Receipt Date: 20140312
  Transmission Date: 20141002
  Serious: No
  Sender: FDA-Public Use
  Company Number: US-INCYTE CORPORATION-2012IN000415

PATIENT
  Age: 79 Year
  Sex: Female

DRUGS (10)
  1. JAKAFI [Suspect]
     Indication: MYELOFIBROSIS
     Dosage: 5 MG, BID
     Route: 048
     Dates: start: 20120305
  2. SINEMET [Concomitant]
     Dosage: 25-100 MG,
     Route: 048
  3. NEURONTIN [Concomitant]
     Dosage: 400 MG, BID
     Route: 048
  4. ACETAMINOPHEN [Concomitant]
  5. COLCHICINE [Concomitant]
  6. ASPIRIN [Concomitant]
     Dosage: 81 MG, QD
     Route: 048
  7. OS-CAL 500 + D [Concomitant]
     Indication: SUPPLEMENTATION THERAPY
     Dosage: 500-125 MG-UNIT
     Route: 048
  8. VITAMIN C [Concomitant]
     Dosage: 500 MG, BID
     Route: 048
  9. LASIX [Concomitant]
  10. HORSE CHESTNUT EXTRACT [Concomitant]
     Dosage: 500 MG, QD
     Route: 048

REACTIONS (1)
  - Rash [Recovered/Resolved]
